FAERS Safety Report 11310032 (Version 2)
Quarter: 2015Q3

REPORT INFORMATION
  Report Type: Spontaneous
  Country: US (occurrence: US)
  Receive Date: 20150724
  Receipt Date: 20150821
  Transmission Date: 20151125
  Serious: Yes (Hospitalization)
  Sender: FDA-Public Use
  Company Number: US-BRACCO-012372

PATIENT
  Age: 60 Year
  Sex: Female
  Weight: 122 kg

DRUGS (9)
  1. FEBUXOSTAT. [Concomitant]
     Active Substance: FEBUXOSTAT
  2. METHYLPREDNISOLONE. [Concomitant]
     Active Substance: METHYLPREDNISOLONE
  3. NITROFURANTOIN. [Concomitant]
     Active Substance: NITROFURANTOIN
     Dates: start: 20150630, end: 20150630
  4. CIPROFLOXACIN. [Concomitant]
     Active Substance: CIPROFLOXACIN
     Dates: start: 20150701
  5. KINEVAC [Suspect]
     Active Substance: SINCALIDE
     Indication: HEPATOBILIARY SCAN
     Dosage: 2.45 MCG
     Route: 042
     Dates: start: 20150706, end: 20150706
  6. COLCHICINE. [Concomitant]
     Active Substance: COLCHICINE
  7. CAPTOPRIL. [Concomitant]
     Active Substance: CAPTOPRIL
  8. BUPROPION. [Concomitant]
     Active Substance: BUPROPION
  9. STERILE WATER [Suspect]
     Active Substance: WATER
     Indication: HEPATOBILIARY SCAN
     Route: 042
     Dates: start: 20150706, end: 20150706

REACTIONS (7)
  - Feeling abnormal [Recovered/Resolved]
  - Nausea [Recovered/Resolved]
  - Product quality issue [Recovered/Resolved]
  - Pyrexia [Recovered/Resolved]
  - Chills [Recovered/Resolved]
  - Myalgia [Recovered/Resolved]
  - Tachycardia [Recovered/Resolved]

NARRATIVE: CASE EVENT DATE: 20150706
